FAERS Safety Report 10238128 (Version 1)
Quarter: 2014Q2

REPORT INFORMATION
  Report Type: Spontaneous
  Country: US (occurrence: US)
  Receive Date: 20140616
  Receipt Date: 20140616
  Transmission Date: 20141212
  Serious: Yes (Other)
  Sender: FDA-Public Use
  Company Number: PHEH2014US011691

PATIENT
  Sex: Female

DRUGS (3)
  1. FEMARA [Suspect]
     Dosage: UNK UKN, UNK
  2. CYTOXAN [Suspect]
     Dosage: UNK UKN, UNK
  3. ACTINOMYCINES [Suspect]
     Dosage: UNK UKN, UNK

REACTIONS (6)
  - Cardiac disorder [Unknown]
  - Metastasis [Unknown]
  - Breast cancer recurrent [Unknown]
  - Cerebrovascular accident [Unknown]
  - Memory impairment [Unknown]
  - Vomiting [Unknown]
